FAERS Safety Report 5731391-7 (Version None)
Quarter: 2008Q2

REPORT INFORMATION
  Report Type: 
  Country: None (occurrence: None)
  Receive Date: 20080506
  Receipt Date: 20080506
  Transmission Date: 20081010
  Serious: Yes (Hospitalization)
  Sender: FDA-Public Use
  Company Number: None

PATIENT
  Sex: Male
  Weight: 91.7 kg

DRUGS (4)
  1. FLUOROURACIL [Suspect]
     Dosage: 5684 MG
  2. BEVACIZUMAB (RHUMAB VEGF) [Suspect]
     Dosage: 458 MG
  3. LEUCOVORIN CALCIUM [Suspect]
     Dosage: 812 MG
  4. ELOXATIN [Suspect]
     Dosage: 172 MG

REACTIONS (5)
  - CATHETER THROMBOSIS [None]
  - DEEP VEIN THROMBOSIS [None]
  - LUNG NEOPLASM [None]
  - PULMONARY EMBOLISM [None]
  - RESPIRATORY MONILIASIS [None]
